FAERS Safety Report 21621439 (Version 3)
Quarter: 2025Q2

REPORT INFORMATION
  Report Type: Spontaneous
  Country: GR (occurrence: GR)
  Receive Date: 20221121
  Receipt Date: 20250616
  Transmission Date: 20250716
  Serious: Yes (Life-Threatening, Hospitalization, Other)
  Sender: PFIZER
  Company Number: GR-PFIZER INC-PV202200104990

PATIENT
  Age: 60 Year
  Sex: Female

DRUGS (2)
  1. CISPLATIN [Suspect]
     Active Substance: CISPLATIN
     Indication: Ovarian cancer stage III
  2. PACLITAXEL [Suspect]
     Active Substance: PACLITAXEL
     Indication: Ovarian cancer stage III

REACTIONS (2)
  - Orthostatic hypotension [Recovering/Resolving]
  - Autonomic nervous system imbalance [Recovering/Resolving]
